FAERS Safety Report 8821471 (Version 1)
Quarter: 2012Q4

REPORT INFORMATION
  Report Type: 
  Country: US (occurrence: US)
  Receive Date: 20121002
  Receipt Date: 20121002
  Transmission Date: 20130627
  Serious: Yes (Death, Other)
  Sender: FDA-Public Use
  Company Number: US-ROCHE-1131412

PATIENT
  Age: 61 Year
  Sex: Female

DRUGS (2)
  1. RITUXAN [Suspect]
     Indication: CHRONIC LYMPHOCYTIC LEUKAEMIA
     Route: 065
     Dates: start: 20000926
  2. RITUXAN [Suspect]
     Route: 065
     Dates: start: 20001006

REACTIONS (5)
  - Death [Fatal]
  - Chest pain [Unknown]
  - Dizziness [Unknown]
  - Vomiting [Unknown]
  - Hypotension [Unknown]
